FAERS Safety Report 9885535 (Version 2)
Quarter: 2014Q3

REPORT INFORMATION
  Report Type: Spontaneous
  Country: FR (occurrence: FR)
  Receive Date: 20140210
  Receipt Date: 20140806
  Transmission Date: 20150326
  Serious: Yes (Hospitalization)
  Sender: FDA-Public Use
  Company Number: FR-PFIZER INC-2014032679

PATIENT
  Age: 59 Year
  Sex: Female

DRUGS (5)
  1. LOVENOX [Concomitant]
     Active Substance: ENOXAPARIN SODIUM
     Indication: VENOUS THROMBOSIS
     Dosage: UNK
     Dates: start: 20131204, end: 20140103
  2. VANCOMYCINE [Suspect]
     Active Substance: VANCOMYCIN
     Indication: ABSCESS MANAGEMENT
     Dosage: UNK
     Dates: start: 20131114, end: 20131118
  3. ROCEPHINE [Suspect]
     Active Substance: CEFTRIAXONE SODIUM
     Indication: ABSCESS MANAGEMENT
     Dosage: UNK
     Dates: start: 20131118, end: 20131119
  4. TAZOCILLINE [Suspect]
     Active Substance: PIPERACILLIN SODIUM\TAZOBACTAM SODIUM
     Indication: ABSCESS MANAGEMENT
     Dosage: UNK
     Dates: start: 20131114, end: 20140102
  5. GENTAMICIN [Suspect]
     Active Substance: GENTAMICIN
     Indication: ABSCESS MANAGEMENT
     Dosage: UNK
     Dates: start: 20131114, end: 20131118

REACTIONS (1)
  - Drug reaction with eosinophilia and systemic symptoms [Recovered/Resolved]

NARRATIVE: CASE EVENT DATE: 20131221
